FAERS Safety Report 16920071 (Version 1)
Quarter: 2019Q4

REPORT INFORMATION
  Report Type: Spontaneous
  Country: IT (occurrence: IT)
  Receive Date: 20191015
  Receipt Date: 20191015
  Transmission Date: 20200122
  Serious: Yes (Hospitalization)
  Sender: FDA-Public Use
  Company Number: IT-COLLEGIUM PHARMACEUTICAL, INC.-IT-2019COL001210

PATIENT
  Age: 55 Year
  Sex: Male

DRUGS (3)
  1. TAPENTADOL EXTENDED RELEASE [Suspect]
     Active Substance: TAPENTADOL
     Indication: PAIN
     Dosage: 50 MG, BID
  2. TAPENTADOL EXTENDED RELEASE [Suspect]
     Active Substance: TAPENTADOL
     Dosage: 100 MG, BID
     Route: 048
  3. DEPAKIN [Suspect]
     Active Substance: VALPROATE SODIUM
     Indication: BEHAVIOUR DISORDER
     Dosage: UNK

REACTIONS (4)
  - Stupor [Unknown]
  - Depressed level of consciousness [Unknown]
  - Drug interaction [Unknown]
  - Hyperammonaemia [Unknown]
